FAERS Safety Report 9765704 (Version 1)
Quarter: 2013Q4

REPORT INFORMATION
  Report Type: Spontaneous
  Country: US (occurrence: US)
  Receive Date: 20131217
  Receipt Date: 20131217
  Transmission Date: 20140711
  Serious: No
  Sender: FDA-Public Use
  Company Number: US-BIOGENIDEC-2013BI113756

PATIENT
  Sex: Female

DRUGS (7)
  1. TECFIDERA [Suspect]
     Indication: MULTIPLE SCLEROSIS
     Route: 048
     Dates: start: 20131018
  2. ALPRAZOLAM [Concomitant]
  3. BENAZEPRIL HCL [Concomitant]
  4. CYCLOBENZAPRINE HCL [Concomitant]
  5. HYDROCHLOROTHIAZIDE [Concomitant]
  6. IMIPRAMINE HCL [Concomitant]
  7. SERTRALINE [Concomitant]

REACTIONS (1)
  - Temperature intolerance [Unknown]
